FAERS Safety Report 20674790 (Version 3)
Quarter: 2025Q1

REPORT INFORMATION
  Report Type: Spontaneous
  Country: US (occurrence: US)
  Receive Date: 20220405
  Receipt Date: 20250305
  Transmission Date: 20250409
  Serious: No
  Sender: TEVA
  Company Number: US-TEVA-2022-US-2015914

PATIENT
  Age: 21 Year
  Sex: Female

DRUGS (1)
  1. CLONAZEPAM [Suspect]
     Active Substance: CLONAZEPAM
     Indication: Anxiety
     Route: 065
     Dates: start: 1987

REACTIONS (16)
  - Feeling abnormal [Not Recovered/Not Resolved]
  - Abdominal discomfort [Recovered/Resolved]
  - Eczema [Recovered/Resolved with Sequelae]
  - Product use in unapproved indication [Unknown]
  - Dyspepsia [Unknown]
  - Chest pain [Unknown]
  - Thermal burn [Unknown]
  - Discomfort [Unknown]
  - Eructation [Unknown]
  - Product substitution issue [Unknown]
  - Adverse event [Unknown]
  - Drug ineffective [Unknown]
  - Withdrawal syndrome [Recovered/Resolved]
  - Anxiety [Recovered/Resolved with Sequelae]
  - Insomnia [Recovered/Resolved]
  - Depression [Recovered/Resolved]

NARRATIVE: CASE EVENT DATE: 19870101
